FAERS Safety Report 11059234 (Version 1)
Quarter: 2015Q2

REPORT INFORMATION
  Report Type: Spontaneous
  Country: US (occurrence: None)
  Receive Date: 20150420
  Receipt Date: 20150420
  Transmission Date: 20150821
  Serious: No
  Sender: FDA-Public Use
  Company Number: AEGR001228

PATIENT
  Age: 76 Year
  Sex: Male
  Weight: 72.6 kg

DRUGS (1)
  1. JUXTAPID [Suspect]
     Active Substance: LOMITAPIDE MESYLATE
     Indication: TYPE IIA HYPERLIPIDAEMIA
     Route: 048
     Dates: start: 20150115, end: 201502

REACTIONS (3)
  - Fatigue [None]
  - Therapy cessation [None]
  - Hypersomnia [None]

NARRATIVE: CASE EVENT DATE: 2015
